FAERS Safety Report 6486485-8 (Version None)
Quarter: 2009Q4

REPORT INFORMATION
  Report Type: 
  Country: None (occurrence: None)
  Receive Date: 20091127
  Receipt Date: 20091116
  Transmission Date: 20100525
  Serious: Yes (Death)
  Sender: FDA-Public Use
  Company Number: THYM-1001297

PATIENT
  Age: 58 Year
  Sex: Female
  Weight: 55 kg

DRUGS (7)
  1. THYMOGLOBULIN [Suspect]
     Indication: GRAFT VERSUS HOST DISEASE
     Dosage: 70 MG, QD, INTRAVENOUS
     Route: 042
     Dates: start: 20090529, end: 20090531
  2. THYMOGLOBULIN [Suspect]
     Indication: PROPHYLAXIS
     Dosage: 70 MG, QD, INTRAVENOUS
     Route: 042
     Dates: start: 20090529, end: 20090531
  3. FLUDARABINE PHOSPHATE [Concomitant]
  4. BUSULFAN (BUSULFAN) [Concomitant]
  5. ITRACONAZLE (ITRACONAZOLE) [Concomitant]
  6. VALACICLOVIR HYDROCHLORIDE (VALACICLOVIR HYDROCHLORIDE) [Concomitant]
  7. ENTECAVIR (ENTECAVIR) [Concomitant]

REACTIONS (2)
  - ACUTE GRAFT VERSUS HOST DISEASE [None]
  - ENCEPHALITIS HERPES [None]
